FAERS Safety Report 13246195 (Version 1)
Quarter: 2017Q1

REPORT INFORMATION
  Report Type: Spontaneous
  Country: FR (occurrence: FR)
  Receive Date: 20170217
  Receipt Date: 20170217
  Transmission Date: 20170428
  Serious: Yes (Hospitalization)
  Sender: FDA-Public Use
  Company Number: FR-ACCORD-048201

PATIENT
  Age: 69 Year
  Sex: Male

DRUGS (5)
  1. IRINOTECAN MYLAN [Suspect]
     Active Substance: IRINOTECAN
     Indication: PROSTATE CANCER METASTATIC
     Dosage: STRENGTH: 20 MG/ML, 166 MG IN ONE SINGLE INTAKE AT DAY 01
     Route: 042
     Dates: start: 20161129
  2. OXALIPLATIN. [Suspect]
     Active Substance: OXALIPLATIN
     Indication: PROSTATE CANCER METASTATIC
     Dosage: 157 MG IN ONE SINGLE INTAKE, DAY 01.
     Route: 042
     Dates: start: 20161129
  3. FLUOROURACIL ACCORD [Suspect]
     Active Substance: FLUOROURACIL
     Indication: PROSTATE CANCER METASTATIC
     Dosage: STRENGTH: 50 MG/ML, 2220 MG + 740 MG AT DAY 01 AND 2220 MG AT DAY 02
     Route: 042
     Dates: start: 20161129, end: 20161130
  4. LASILIX FAIBLE [Concomitant]
     Active Substance: FUROSEMIDE
     Dosage: STRENGTH: 20 MG?COMPRESSED
     Route: 048
  5. XATRAL LP [Concomitant]
     Active Substance: ALFUZOSIN
     Dosage: STRENGTH: 10 MG
     Route: 048

REACTIONS (3)
  - Dehydration [Unknown]
  - Off label use [Unknown]
  - Vomiting [Recovered/Resolved]

NARRATIVE: CASE EVENT DATE: 20161204
